FAERS Safety Report 8162602-9 (Version None)
Quarter: 2012Q1

REPORT INFORMATION
  Report Type: 
  Country: None (occurrence: None)
  Receive Date: 20120224
  Receipt Date: 20120214
  Transmission Date: 20120608
  Serious: Yes (Hospitalization)
  Sender: FDA-Public Use
  Company Number: JP-NOVOPROD-344677

PATIENT
  Age: 74 Year
  Sex: Female
  Weight: 70 kg

DRUGS (11)
  1. LIRAGLUTIDE FLEXPEN [Suspect]
     Dosage: 0.6 MG, QD
     Route: 058
     Dates: start: 20110919
  2. MUCODYNE [Concomitant]
     Dosage: /PO
     Route: 048
  3. AMLODIPINE [Concomitant]
     Dosage: /PO
     Route: 048
  4. LIRAGLUTIDE FLEXPEN [Suspect]
     Dosage: 0.9 MG, QD
     Route: 058
     Dates: start: 20110928, end: 20111028
  5. ONON [Concomitant]
     Dosage: /PO
     Route: 048
  6. ACTOS [Concomitant]
     Dosage: 15 MG, QD
     Route: 048
     Dates: start: 20110615
  7. ANGINAL                            /00042901/ [Concomitant]
     Dosage: /PO
     Route: 048
  8. KOLANTYL                           /00130401/ [Concomitant]
     Dosage: /PO
     Route: 048
  9. MEVAN                              /00010301/ [Concomitant]
     Dosage: /PO
     Route: 048
  10. LIRAGLUTIDE FLEXPEN [Suspect]
     Indication: TYPE 2 DIABETES MELLITUS
     Dosage: 0.3 MG, QD
     Route: 058
     Dates: start: 20110915
  11. LASIX [Concomitant]
     Dosage: /PO
     Route: 048

REACTIONS (1)
  - CHOLELITHIASIS [None]
